FAERS Safety Report 13724722 (Version 2)
Quarter: 2017Q3

REPORT INFORMATION
  Report Type: Spontaneous
  Country: US (occurrence: US)
  Receive Date: 20170706
  Receipt Date: 20170817
  Transmission Date: 20171127
  Serious: No
  Sender: FDA-Public Use
  Company Number: US-ASTRAZENECA-2017SE69000

PATIENT
  Sex: Male
  Weight: 72.6 kg

DRUGS (1)
  1. PULMICORT FLEXHALER [Suspect]
     Active Substance: BUDESONIDE
     Indication: COUGH
     Route: 055
     Dates: start: 20170630

REACTIONS (3)
  - Product quality issue [Unknown]
  - Intentional product misuse [Unknown]
  - Drug ineffective [Unknown]
